FAERS Safety Report 6056277-2 (Version None)
Quarter: 2009Q1

REPORT INFORMATION
  Report Type: 
  Country: None (occurrence: None)
  Receive Date: 20090126
  Receipt Date: 20090126
  Transmission Date: 20090719
  Serious: Yes (Life-Threatening, Other)
  Sender: FDA-Public Use
  Company Number: None

PATIENT
  Sex: Female
  Weight: 74.3899 kg

DRUGS (2)
  1. CYMBALTA [Suspect]
     Indication: FIBROMYALGIA
     Dosage: 1 AT BEDTIME APPROX. 5 WKS TO 6 WKS
     Dates: start: 20080101
  2. CYMBALTA [Suspect]
     Indication: NEUROPATHY PERIPHERAL
     Dosage: 1 AT BEDTIME APPROX. 5 WKS TO 6 WKS
     Dates: start: 20080101

REACTIONS (5)
  - EMOTIONAL DISORDER [None]
  - FEELING ABNORMAL [None]
  - MIGRAINE [None]
  - SUICIDAL IDEATION [None]
  - THINKING ABNORMAL [None]
